FAERS Safety Report 6894033-3 (Version None)
Quarter: 2010Q3

REPORT INFORMATION
  Report Type: 
  Country: None (occurrence: None)
  Receive Date: 20100802
  Receipt Date: 20100720
  Transmission Date: 20110219
  Serious: No
  Sender: FDA-Public Use
  Company Number: AU-JNJFOC-20100707350

PATIENT
  Sex: Male

DRUGS (3)
  1. DURAGESIC-100 [Suspect]
     Indication: PAIN
     Route: 062
  2. VALIUM [Concomitant]
     Route: 065
  3. ENDEP [Concomitant]
     Route: 065

REACTIONS (4)
  - DRUG PRESCRIBING ERROR [None]
  - FATIGUE [None]
  - PRODUCT QUALITY ISSUE [None]
  - SEDATION [None]
